FAERS Safety Report 5794335-8 (Version None)
Quarter: 2008Q2

REPORT INFORMATION
  Report Type: 
  Country: None (occurrence: None)
  Receive Date: 20080625
  Receipt Date: 20080610
  Transmission Date: 20081010
  Serious: Yes (Death)
  Sender: FDA-Public Use
  Company Number: 2008AL006724

PATIENT
  Age: 67 Year
  Sex: Male
  Weight: 88.4514 kg

DRUGS (6)
  1. DIGOXIN [Suspect]
     Indication: ARRHYTHMIA
     Dosage: 0.25MG,QD,PO
     Route: 048
     Dates: start: 20060715, end: 20071019
  2. LISINOPRIL [Concomitant]
  3. ZETIA [Concomitant]
  4. COREG [Concomitant]
  5. LANTUS [Concomitant]
  6. HUMALOG [Concomitant]

REACTIONS (3)
  - FALL [None]
  - UPPER AIRWAY OBSTRUCTION [None]
  - WEIGHT DECREASED [None]
